FAERS Safety Report 15788633 (Version 7)
Quarter: 2020Q1

REPORT INFORMATION
  Report Type: Report from Study
  Country: US (occurrence: US)
  Receive Date: 20190104
  Receipt Date: 20200121
  Transmission Date: 20200409
  Serious: Yes (Death, Life-Threatening, Hospitalization, Other)
  Sender: FDA-Public Use
  Company Number: US-ASTELLAS-2019US000192

PATIENT
  Age: 86 Year
  Sex: Male
  Weight: 56 kg

DRUGS (13)
  1. ENZALUTAMIDE [Suspect]
     Active Substance: ENZALUTAMIDE
     Indication: HORMONE-REFRACTORY PROSTATE CANCER
     Route: 048
     Dates: start: 20181015, end: 20190709
  2. SIMVASTATIN. [Concomitant]
     Active Substance: SIMVASTATIN
     Indication: PRODUCT USED FOR UNKNOWN INDICATION
     Route: 048
  3. ACETYLSALICYLIC ACID [Concomitant]
     Active Substance: ASPIRIN
     Indication: PRODUCT USED FOR UNKNOWN INDICATION
     Route: 065
  4. PROLIA [Concomitant]
     Active Substance: DENOSUMAB
     Indication: PRODUCT USED FOR UNKNOWN INDICATION
     Dosage: 60 MG/ML, EVERY 6 MONTHS
     Route: 058
  5. DONEPEZIL. [Concomitant]
     Active Substance: DONEPEZIL
     Indication: PRODUCT USED FOR UNKNOWN INDICATION
     Route: 065
     Dates: start: 20190709
  6. DONEPEZIL. [Concomitant]
     Active Substance: DONEPEZIL
     Route: 065
  7. PROSTEON [Concomitant]
     Active Substance: MINERALS
     Indication: PRODUCT USED FOR UNKNOWN INDICATION
     Route: 048
  8. METPROLOL [Concomitant]
     Active Substance: METOPROLOL
     Indication: PRODUCT USED FOR UNKNOWN INDICATION
     Dosage: UNK UNK, UNKNOWN FREQ.
     Route: 065
     Dates: end: 20190514
  9. ELIQUIS [Concomitant]
     Active Substance: APIXABAN
     Indication: PRODUCT USED FOR UNKNOWN INDICATION
     Route: 048
     Dates: end: 20190702
  10. ELIGARD [Concomitant]
     Active Substance: LEUPROLIDE ACETATE
     Indication: PRODUCT USED FOR UNKNOWN INDICATION
     Dosage: 45 MG, EVERY 6 MONTH
     Route: 058
  11. METPROLOL [Concomitant]
     Active Substance: METOPROLOL
     Dosage: 0.25 MG, TWICE DAILY (1/4 TABLET)
     Route: 048
     Dates: end: 20190609
  12. ENZALUTAMIDE [Suspect]
     Active Substance: ENZALUTAMIDE
     Route: 048
     Dates: end: 20190927
  13. ASPIRIN [ACETYLSALICYLIC ACID] [Concomitant]
     Active Substance: ASPIRIN
     Indication: PRODUCT USED FOR UNKNOWN INDICATION
     Route: 048
     Dates: end: 20190709

REACTIONS (15)
  - Head injury [Recovering/Resolving]
  - Asthenia [Unknown]
  - Head injury [Fatal]
  - Fall [Recovering/Resolving]
  - Somnolence [Recovered/Resolved]
  - Nightmare [Recovering/Resolving]
  - Cognitive disorder [Recovering/Resolving]
  - Brain contusion [Unknown]
  - Fatigue [Recovered/Resolved]
  - Subdural haematoma [Recovering/Resolving]
  - Blood pressure decreased [Not Recovered/Not Resolved]
  - Anxiety [Unknown]
  - Dementia [Recovering/Resolving]
  - Hypersomnia [Recovered/Resolved]
  - Dizziness [Recovering/Resolving]

NARRATIVE: CASE EVENT DATE: 201810
